FAERS Safety Report 7408662-1 (Version None)
Quarter: 2011Q2

REPORT INFORMATION
  Report Type: 
  Country: None (occurrence: None)
  Receive Date: 20110412
  Receipt Date: 20110401
  Transmission Date: 20111010
  Serious: Yes (Other)
  Sender: FDA-Public Use
  Company Number: US-SANOFI-AVENTIS-2011SA021369

PATIENT
  Age: 74 Year
  Sex: Male

DRUGS (1)
  1. ELIGARD [Suspect]
     Indication: PROSTATE CANCER
     Route: 065
     Dates: start: 20071206

REACTIONS (6)
  - HYPOAESTHESIA [None]
  - MUSCLE ATROPHY [None]
  - CARPAL TUNNEL SYNDROME [None]
  - COLON CANCER [None]
  - PARAESTHESIA [None]
  - AXONAL NEUROPATHY [None]
